FAERS Safety Report 9325880 (Version 1)
Quarter: 2013Q2

REPORT INFORMATION
  Report Type: Spontaneous
  Country: US (occurrence: US)
  Receive Date: 20130604
  Receipt Date: 20130604
  Transmission Date: 20140414
  Serious: No
  Sender: FDA-Public Use
  Company Number: US-009507513-1305USA017355

PATIENT
  Age: 61 Year
  Sex: Male

DRUGS (2)
  1. PEGINTRON [Suspect]
     Indication: HEPATITIS C
     Dosage: 120 MICROGRAM, QW
     Route: 058
     Dates: start: 20130425, end: 20130515
  2. RIBASPHERE [Suspect]
     Dosage: UNK

REACTIONS (1)
  - Palpitations [Not Recovered/Not Resolved]
